FAERS Safety Report 8995154 (Version 2)
Quarter: 2013Q3

REPORT INFORMATION
  Report Type: Report from Study
  Country: NL (occurrence: NL)
  Receive Date: 20130102
  Receipt Date: 20130716
  Transmission Date: 20140515
  Serious: Yes (Life-Threatening, Hospitalization)
  Sender: FDA-Public Use
  Company Number: NL-ROCHE-GNE313898

PATIENT
  Age: 71 Year
  Sex: Male
  Weight: 80.09 kg

DRUGS (14)
  1. RANIBIZUMAB [Suspect]
     Indication: DIABETIC RETINAL OEDEMA
     Route: 050
     Dates: start: 20110127
  2. GLIMEPIRIDE [Concomitant]
     Indication: PRODUCT USED FOR UNKNOWN INDICATION
  3. AMLODIPINE [Concomitant]
     Indication: PRODUCT USED FOR UNKNOWN INDICATION
  4. PRAVASTATINE [Concomitant]
     Indication: PRODUCT USED FOR UNKNOWN INDICATION
  5. ENALAPRIL [Concomitant]
     Indication: PRODUCT USED FOR UNKNOWN INDICATION
  6. LOSAPREX [Concomitant]
     Indication: PRODUCT USED FOR UNKNOWN INDICATION
  7. ASCAL [Concomitant]
     Indication: PRODUCT USED FOR UNKNOWN INDICATION
  8. FERROFUMARAT [Concomitant]
     Indication: PRODUCT USED FOR UNKNOWN INDICATION
  9. NEXIUM [Concomitant]
     Indication: PRODUCT USED FOR UNKNOWN INDICATION
  10. SPIRIVA [Concomitant]
     Indication: PRODUCT USED FOR UNKNOWN INDICATION
  11. SERETIDE [Concomitant]
     Indication: PRODUCT USED FOR UNKNOWN INDICATION
  12. LUMIGAN [Concomitant]
     Indication: PRODUCT USED FOR UNKNOWN INDICATION
  13. DAIVONEX [Concomitant]
     Indication: PRODUCT USED FOR UNKNOWN INDICATION
  14. METFORMIN [Concomitant]

REACTIONS (6)
  - Myocardial infarction [Recovering/Resolving]
  - Pneumonia [Recovering/Resolving]
  - Hypercholesterolaemia [Unknown]
  - Peripheral vascular disorder [Unknown]
  - Hypertension [Unknown]
  - Concomitant disease progression [Unknown]
